FAERS Safety Report 24980998 (Version 2)
Quarter: 2025Q1

REPORT INFORMATION
  Report Type: Spontaneous
  Country: CA (occurrence: CA)
  Receive Date: 20250218
  Receipt Date: 20250221
  Transmission Date: 20250408
  Serious: Yes (Other)
  Sender: PFIZER
  Company Number: CA-PFIZER INC-PV202500018485

PATIENT
  Age: 63 Year
  Sex: Female

DRUGS (3)
  1. ELREXFIO [Suspect]
     Active Substance: ELRANATAMAB-BCMM
     Indication: Plasma cell myeloma
     Dosage: 76 MG, WEEKLY
     Route: 058
     Dates: start: 20250128
  2. ELREXFIO [Suspect]
     Active Substance: ELRANATAMAB-BCMM
     Dosage: 76 MG, WEEKLY
     Route: 058
     Dates: start: 20250204
  3. ELREXFIO [Suspect]
     Active Substance: ELRANATAMAB-BCMM
     Dosage: 76 MG, WEEKLY
     Route: 058
     Dates: start: 20250213

REACTIONS (4)
  - Cytokine release syndrome [Unknown]
  - Pyrexia [Recovering/Resolving]
  - Heart rate increased [Unknown]
  - Blood pressure increased [Unknown]

NARRATIVE: CASE EVENT DATE: 20250201
